FAERS Safety Report 18504081 (Version 1)
Quarter: 2020Q4

REPORT INFORMATION
  Report Type: Spontaneous
  Country: US (occurrence: US)
  Receive Date: 20201113
  Receipt Date: 20201113
  Transmission Date: 20210114
  Serious: Yes (Death, Hospitalization, Other)
  Sender: FDA-Public Use
  Company Number: US-009507513-2011USA008243

PATIENT
  Sex: Male

DRUGS (1)
  1. JANUVIA [Suspect]
     Active Substance: SITAGLIPTIN PHOSPHATE
     Indication: DIABETES MELLITUS
     Dosage: QD  (ONCE DAILY)
     Route: 048
     Dates: start: 2019

REACTIONS (4)
  - Pain [Unknown]
  - Adverse event [Unknown]
  - Cardiac failure [Fatal]
  - Cardiac procedure complication [Unknown]

NARRATIVE: CASE EVENT DATE: 2020
